FAERS Safety Report 9251804 (Version 2)
Quarter: 2013Q2

REPORT INFORMATION
  Report Type: Report from Study
  Country: US (occurrence: US)
  Receive Date: 20130424
  Receipt Date: 20130530
  Transmission Date: 20140414
  Serious: Yes (Death)
  Sender: FDA-Public Use
  Company Number: PHEH2013US009105

PATIENT
  Age: 72 Year
  Sex: Male
  Weight: 77.2 kg

DRUGS (18)
  1. TASIGNA [Suspect]
     Indication: CHRONIC MYELOID LEUKAEMIA
     Dosage: 300 MG, Q12H
     Route: 048
     Dates: start: 20120514
  2. XANAX [Concomitant]
     Dosage: 0.25 MG, UNK
     Route: 048
  3. NORVASC [Concomitant]
     Dosage: 10 MG, UNK
     Route: 048
  4. ASPIRIN [Concomitant]
     Dosage: 81 MG, UNK
     Route: 048
  5. LOTENSIN [Concomitant]
     Dosage: 20 MG, UNK
     Route: 048
  6. CELEXA [Concomitant]
     Dosage: 20 MG, UNK
     Route: 048
  7. CALCIUM 500+D [Concomitant]
     Dosage: 2 DF, UNK
     Route: 048
  8. CO Q 10 [Concomitant]
     Route: 048
  9. FISH OIL [Concomitant]
     Dosage: 1000 MG, UNK
     Route: 048
  10. GLUCOSAMINE SULPHATE [Concomitant]
     Route: 048
  11. ZOCOR [Concomitant]
     Dosage: 20 MG, UNK
     Route: 048
  12. LAMISIL [Concomitant]
     Dosage: 250 MG, UNK
     Route: 048
  13. TESTIM [Concomitant]
     Dosage: 1 %, UNK
     Route: 061
  14. AZMACORT [Concomitant]
     Dosage: 0.5 %, UNK
     Route: 061
  15. VITAMIN C [Concomitant]
     Dosage: 1000 MG, UNK
     Route: 048
  16. VITAMIN D [Concomitant]
     Dosage: 1000 U, UNK
     Route: 048
  17. ALLOPURINOL [Concomitant]
     Dosage: 30 MG, UNK
     Route: 048
  18. PONATINIB [Concomitant]
     Dosage: 1 DF, UNK
     Route: 048
     Dates: start: 20130405

REACTIONS (2)
  - Chronic myeloid leukaemia [Fatal]
  - Malignant neoplasm progression [Fatal]
